FAERS Safety Report 10414157 (Version 4)
Quarter: 2014Q4

REPORT INFORMATION
  Report Type: Report from Study
  Country: MX (occurrence: MX)
  Receive Date: 20140827
  Receipt Date: 20141007
  Transmission Date: 20150528
  Serious: Yes (Death, Hospitalization)
  Sender: FDA-Public Use
  Company Number: MX-ASTRAZENECA-2014SE63940

PATIENT
  Age: 27364 Day
  Sex: Male
  Weight: 71.2 kg

DRUGS (1)
  1. TICAGRELOR [Suspect]
     Active Substance: TICAGRELOR
     Indication: PERIPHERAL ARTERIAL OCCLUSIVE DISEASE
     Route: 048
     Dates: start: 20131021, end: 20140816

REACTIONS (1)
  - Autoimmune aplastic anaemia [Fatal]

NARRATIVE: CASE EVENT DATE: 20140816
